FAERS Safety Report 4942701-2 (Version None)
Quarter: 2006Q1

REPORT INFORMATION
  Report Type: 
  Country: None (occurrence: None)
  Receive Date: 20060314
  Receipt Date: 20060301
  Transmission Date: 20060701
  Serious: Yes (Death, Hospitalization)
  Sender: FDA-Public Use
  Company Number: US-BOEHRINGER INGELHEIM PHARMACEUTICALS, INC.-2006-BP-02347BP

PATIENT
  Age: 32 Year
  Sex: Female

DRUGS (1)
  1. TRIOMUNE TABLETS [Suspect]
     Indication: HIV INFECTION
     Route: 048
     Dates: start: 20040603

REACTIONS (7)
  - COMA HEPATIC [None]
  - DRUG EXPOSURE DURING PREGNANCY [None]
  - HEPATITIS FULMINANT [None]
  - HEPATOTOXICITY [None]
  - LOBAR PNEUMONIA [None]
  - MACROCYTOSIS [None]
  - PYREXIA [None]
